FAERS Safety Report 9565700 (Version 2)
Quarter: 2014Q3

REPORT INFORMATION
  Report Type: Spontaneous
  Country: US (occurrence: US)
  Receive Date: 20130930
  Receipt Date: 20140922
  Transmission Date: 20150326
  Serious: Yes (Hospitalization)
  Sender: FDA-Public Use
  Company Number: US-GLAXOSMITHKLINE-A1042707A

PATIENT
  Age: 27 Year
  Sex: Female

DRUGS (19)
  1. PREDNISONE. [Concomitant]
     Active Substance: PREDNISONE
  2. VITAMIN B12 [Concomitant]
     Active Substance: CYANOCOBALAMIN
  3. ZOFRAN [Concomitant]
     Active Substance: ONDANSETRON HYDROCHLORIDE
  4. FLAXSEED [Concomitant]
     Active Substance: FLAX SEED
  5. METOPROLOL [Concomitant]
     Active Substance: METOPROLOL
  6. TRAMADOL [Concomitant]
     Active Substance: TRAMADOL
  7. PLAQUENIL [Concomitant]
     Active Substance: HYDROXYCHLOROQUINE SULFATE
  8. BACLOFEN. [Concomitant]
     Active Substance: BACLOFEN
  9. CYMBALTA [Concomitant]
     Active Substance: DULOXETINE HYDROCHLORIDE
  10. POTASSIUM [Concomitant]
     Active Substance: POTASSIUM
  11. OMEGA 3 [Concomitant]
     Active Substance: OMEGA-3 FATTY ACIDS
  12. OXYCONTIN [Concomitant]
     Active Substance: OXYCODONE HYDROCHLORIDE
  13. BENLYSTA [Suspect]
     Active Substance: BELIMUMAB
     Indication: SYSTEMIC LUPUS ERYTHEMATOSUS
     Dosage: 600MG CYCLIC
     Route: 042
     Dates: start: 201210, end: 2014
  14. VITAMIN D [Concomitant]
     Active Substance: CHOLECALCIFEROL
  15. OCELLA [Concomitant]
     Active Substance: DROSPIRENONE\ETHINYL ESTRADIOL
  16. OXYCODONE [Concomitant]
     Active Substance: OXYCODONE
  17. BIOTIN [Concomitant]
     Active Substance: BIOTIN
  18. AMITRIPTYLINE [Concomitant]
     Active Substance: AMITRIPTYLINE
  19. VITAMIN B [Concomitant]
     Active Substance: VITAMIN B

REACTIONS (13)
  - Systemic lupus erythematosus [Recovering/Resolving]
  - Angiopathy [Recovering/Resolving]
  - Weight increased [Recovering/Resolving]
  - Drug ineffective [Recovering/Resolving]
  - Skin disorder [Recovering/Resolving]
  - Insomnia [Recovering/Resolving]
  - Urinary tract infection [Recovering/Resolving]
  - Vasculitis [Recovering/Resolving]
  - Wound [Recovering/Resolving]
  - Fatigue [Recovering/Resolving]
  - Skin lesion [Recovering/Resolving]
  - Wound infection [Recovering/Resolving]
  - Angiodermatitis [Recovering/Resolving]

NARRATIVE: CASE EVENT DATE: 201210
